FAERS Safety Report 26019723 (Version 1)
Quarter: 2025Q4

REPORT INFORMATION
  Report Type: Spontaneous
  Country: US (occurrence: US)
  Receive Date: 20251110
  Receipt Date: 20251110
  Transmission Date: 20260118
  Serious: No
  Sender: GALPHARM INTERNATIONAL
  Company Number: US-PERRIGO-24US009405

PATIENT
  Sex: Male

DRUGS (2)
  1. POLYETHYLENE GLYCOL 3350 [Suspect]
     Active Substance: POLYETHYLENE GLYCOL 3350
     Indication: Colonoscopy
     Dosage: UNKNOWN, UNKNOWN
     Route: 048
     Dates: start: 20240930, end: 20240930
  2. BISACODYL [Suspect]
     Active Substance: BISACODYL
     Indication: Colonoscopy
     Dosage: UNKNOWN, UNKNOWN
     Route: 065
     Dates: start: 20240930, end: 20240930

REACTIONS (3)
  - Diarrhoea [Recovered/Resolved]
  - Expired product administered [Unknown]
  - Product use in unapproved indication [Unknown]

NARRATIVE: CASE EVENT DATE: 20240930
